FAERS Safety Report 10126655 (Version 1)
Quarter: 2014Q2

REPORT INFORMATION
  Report Type: Report from Study
  Country: BR (occurrence: BR)
  Receive Date: 20140427
  Receipt Date: 20140427
  Transmission Date: 20141212
  Serious: Yes (Hospitalization)
  Sender: FDA-Public Use
  Company Number: BR-ROCHE-1390718

PATIENT
  Sex: Female
  Weight: 50 kg

DRUGS (3)
  1. ACTEMRA [Suspect]
     Indication: RHEUMATOID ARTHRITIS
     Route: 042
     Dates: start: 20140319
  2. METHOTREXATE [Concomitant]
  3. FOLIC ACID [Concomitant]

REACTIONS (1)
  - Corneal disorder [Unknown]
